FAERS Safety Report 19448188 (Version 1)
Quarter: 2021Q2

REPORT INFORMATION
  Report Type: Spontaneous
  Country: US (occurrence: US)
  Receive Date: 20210622
  Receipt Date: 20210622
  Transmission Date: 20210717
  Serious: No
  Sender: FDA-Public Use
  Company Number: US-APOTEX-2021AP012965

PATIENT
  Sex: Female

DRUGS (2)
  1. IPRATROPIUM BROMIDE NASAL SOLUTION [Suspect]
     Active Substance: IPRATROPIUM BROMIDE
     Dosage: UNK, BID, 2 SPRAY IN EACH NOSTRIL
     Route: 045
     Dates: start: 20210525
  2. IPRATROPIUM BROMIDE NASAL SOLUTION [Suspect]
     Active Substance: IPRATROPIUM BROMIDE
     Indication: PRODUCT USED FOR UNKNOWN INDICATION
     Dosage: UNK, BID, 2 SPRAY IN EACH NOSTRIL
     Route: 045
     Dates: start: 20210524

REACTIONS (2)
  - Metamorphopsia [Unknown]
  - Aura [Unknown]
